APPROVED DRUG PRODUCT: CETIRIZINE HYDROCHLORIDE ALLERGY
Active Ingredient: CETIRIZINE HYDROCHLORIDE
Strength: 10MG
Dosage Form/Route: TABLET;ORAL
Application: A209274 | Product #001
Applicant: GRANULES INDIA LTD
Approved: Dec 22, 2017 | RLD: No | RS: No | Type: OTC